FAERS Safety Report 6505764-9 (Version None)
Quarter: 2009Q4

REPORT INFORMATION
  Report Type: 
  Country: None (occurrence: None)
  Receive Date: 20091218
  Receipt Date: 20091215
  Transmission Date: 20100525
  Serious: Yes (Hospitalization, Other)
  Sender: FDA-Public Use
  Company Number: GB-PFIZER INC-2009310438

PATIENT
  Age: 78 Year
  Sex: Male

DRUGS (4)
  1. BLINDED *PLACEBO [Suspect]
     Indication: RHEUMATOID ARTHRITIS
     Dosage: UNK
     Dates: start: 20080626, end: 20080820
  2. BLINDED ATORVASTATIN CALCIUM [Suspect]
     Indication: RHEUMATOID ARTHRITIS
     Dosage: UNK
     Dates: start: 20080626, end: 20080820
  3. BLINDED *PLACEBO [Suspect]
     Indication: CARDIOVASCULAR EVENT PROPHYLAXIS
  4. BLINDED ATORVASTATIN CALCIUM [Suspect]
     Indication: CARDIOVASCULAR EVENT PROPHYLAXIS

REACTIONS (2)
  - DIARRHOEA [None]
  - VOMITING [None]
